FAERS Safety Report 20479818 (Version 1)
Quarter: 2022Q1

REPORT INFORMATION
  Report Type: Report from Study
  Country: CA (occurrence: CA)
  Receive Date: 20220216
  Receipt Date: 20220216
  Transmission Date: 20220424
  Serious: Yes (Disabling, Other)
  Sender: FDA-Public Use
  Company Number: CA-JNJFOC-20220219165

PATIENT
  Age: 74 Year
  Sex: Male

DRUGS (2)
  1. SIMPONI [Suspect]
     Active Substance: GOLIMUMAB
     Indication: Ankylosing spondylitis
     Dosage: STRENGTH:50 UNITS NOT REPORTED
     Route: 058
  2. SIMPONI [Suspect]
     Active Substance: GOLIMUMAB

REACTIONS (1)
  - Blindness unilateral [Unknown]
